FAERS Safety Report 23743305 (Version 1)
Quarter: 2024Q2

REPORT INFORMATION
  Report Type: Report from Study
  Country: TH (occurrence: None)
  Receive Date: 20240415
  Receipt Date: 20240415
  Transmission Date: 20240716
  Serious: Yes (Death, Hospitalization)
  Sender: FDA-Public Use
  Company Number: 2021A848047

PATIENT
  Age: 45 Year
  Sex: Male

DRUGS (1)
  1. TAGRISSO [Suspect]
     Active Substance: OSIMERTINIB
     Indication: Non-small cell lung cancer
     Route: 048
     Dates: start: 20210407, end: 2021

REACTIONS (4)
  - Gait disturbance [Fatal]
  - Autoimmune disorder [Fatal]
  - Magnetic resonance imaging head abnormal [Fatal]
  - Sepsis [Fatal]

NARRATIVE: CASE EVENT DATE: 20210101
